FAERS Safety Report 9717414 (Version 1)
Quarter: 2013Q4

REPORT INFORMATION
  Report Type: Spontaneous
  Country: US (occurrence: US)
  Receive Date: 20131127
  Receipt Date: 20131127
  Transmission Date: 20140711
  Serious: No
  Sender: FDA-Public Use
  Company Number: US-PFIZER INC-2013336063

PATIENT
  Age: 59 Year
  Sex: Female
  Weight: 68.03 kg

DRUGS (2)
  1. AZITHROMYCIN [Suspect]
     Dosage: UNK
     Dates: start: 201311
  2. VENTOLIN [Concomitant]
     Dosage: UNK
     Dates: start: 201311

REACTIONS (1)
  - Drug ineffective [Unknown]
